FAERS Safety Report 6316989-X (Version None)
Quarter: 2009Q3

REPORT INFORMATION
  Report Type: 
  Country: None (occurrence: None)
  Receive Date: 20090820
  Receipt Date: 20090812
  Transmission Date: 20100115
  Serious: No
  Sender: FDA-Public Use
  Company Number: US-B.I. PHARMACEUTICALS,INC./RIDGEFIELD-2009-BP-09600BP

PATIENT
  Sex: Female

DRUGS (4)
  1. ZANTAC 75 [Suspect]
     Indication: DYSPEPSIA
     Dosage: 75 MG
     Route: 048
     Dates: start: 20090811
  2. ATENOLOL [Concomitant]
     Indication: HEART RATE IRREGULAR
  3. INCREASED BLOOD PRESSURE MEDICATION [Concomitant]
     Indication: BLOOD PRESSURE INCREASED
  4. ZANTAC PRODUCT MANUFACTURER UNKNOWN [Concomitant]
     Indication: DYSPEPSIA
     Dosage: 150 MG
     Route: 048
     Dates: start: 20070101, end: 20090810

REACTIONS (1)
  - DRUG INEFFECTIVE [None]
